FAERS Safety Report 9496171 (Version 1)
Quarter: 2013Q3

REPORT INFORMATION
  Report Type: Spontaneous
  Country: BR (occurrence: None)
  Receive Date: 20130829
  Receipt Date: 20130829
  Transmission Date: 20140515
  Serious: Yes (Other)
  Sender: FDA-Public Use
  Company Number: AUR-APL-2013-07138

PATIENT
  Age: 59 Year
  Sex: 0
  Weight: 40 kg

DRUGS (5)
  1. ATENOLOL (ATENOLOL) [Suspect]
     Indication: HYPERTENSION
     Route: 048
     Dates: start: 1993, end: 2013
  2. METOPROLOL TARTRATE (METOPROLOL TARTRATE) (TABLETS) (METOPROLOL TARTRATE) [Suspect]
     Indication: PRODUCT USED FOR UNKNOWN INDICATION
  3. SELOZOK [Suspect]
     Indication: HYPERTENSION
     Route: 048
  4. SIMVASTATIN (SIMVASTATIN) [Concomitant]
  5. EZETROL (EZETIMIBE) [Concomitant]

REACTIONS (8)
  - Dyspepsia [None]
  - Nausea [None]
  - Vomiting [None]
  - Hepatitis [None]
  - Blood pressure increased [None]
  - Tachycardia [None]
  - Anxiety [None]
  - Medication error [None]
